FAERS Safety Report 6655312-8 (Version None)
Quarter: 2010Q1

REPORT INFORMATION
  Report Type: 
  Country: None (occurrence: None)
  Receive Date: 20100324
  Receipt Date: 20100308
  Transmission Date: 20100710
  Serious: Yes (Other)
  Sender: FDA-Public Use
  Company Number: GB-1181210

PATIENT
  Sex: Female

DRUGS (1)
  1. IOPIDINE [Suspect]
     Dosage: OPHTHALMIC
     Route: 047

REACTIONS (4)
  - BLINDNESS [None]
  - DEPRESSION [None]
  - EYE PAIN [None]
  - OCULAR HYPERAEMIA [None]
